FAERS Safety Report 9536065 (Version 1)
Quarter: 2013Q2

REPORT INFORMATION
  Report Type: Spontaneous
  Country: US (occurrence: None)
  Receive Date: 20130507
  Receipt Date: 20130507
  Transmission Date: 20140414
  Serious: No
  Sender: FDA-Public Use
  Company Number: PHEH2012US025641

PATIENT
  Age: 69 Year
  Sex: Female

DRUGS (14)
  1. AFINITOR (RAD) TABLET, 10MG [Suspect]
     Indication: BREAST CANCER
  2. ADVAIR (FLUTICASONE PROPIONATE, SALMETEROL XINAFOATE) [Concomitant]
  3. TESSALON (BENZONATATE) [Concomitant]
  4. COMBIVENT (IPRATROPIUM BROMIDE, SALBUTAMOL SULFATE) [Concomitant]
  5. KENALOG [Concomitant]
  6. PERIDEX (CHLORHEXIDINE GLUCONATE) [Concomitant]
  7. PROCHLORPERAZ (PROCHLORPERAZINE MALEATE) [Concomitant]
  8. PROCHLORPERAZ (PROCHLORPERAZINE MALEATE) [Concomitant]
  9. AROMASIN (EXEMESTANE) [Concomitant]
  10. TABROL (SULFAMETHOXAZOLE, TRIMETHOPRIM) [Concomitant]
  11. PRAVACHOL (PRAVASTATIN SODIUM) [Concomitant]
  12. SYNTHROID (LEVOTHYROXINE SODIUM) [Concomitant]
  13. OMEPRAZOLE (OMEPRAZOLE) [Concomitant]
  14. ZOMETA (ZOLEDRONIC ACID) [Concomitant]

REACTIONS (2)
  - Epistaxis [None]
  - Embolism [None]
